FAERS Safety Report 9399015 (Version 1)
Quarter: 2013Q3

REPORT INFORMATION
  Report Type: Spontaneous
  Country: US (occurrence: US)
  Receive Date: 20130714
  Receipt Date: 20130714
  Transmission Date: 20140515
  Serious: Yes (Other)
  Sender: FDA-Public Use
  Company Number: US-JNJFOC-20130706052

PATIENT
  Age: 34 Year
  Sex: Male
  Weight: 90.72 kg

DRUGS (1)
  1. EXTRA STRENGTH TYLENOL [Suspect]
     Indication: PAIN
     Dosage: RARELY
     Route: 048
     Dates: start: 20130708, end: 20130708

REACTIONS (2)
  - Loss of consciousness [Unknown]
  - Drug ineffective [Unknown]
